FAERS Safety Report 7048879-1 (Version None)
Quarter: 2010Q4

REPORT INFORMATION
  Report Type: 
  Country: None (occurrence: None)
  Receive Date: 20101012
  Receipt Date: 20101001
  Transmission Date: 20110411
  Serious: Yes (Hospitalization)
  Sender: FDA-Public Use
  Company Number: 2010EU005241

PATIENT
  Age: 69 Year
  Sex: Male

DRUGS (11)
  1. PROGRAF [Suspect]
     Indication: LUNG TRANSPLANT
     Dosage: 2 MG, BID, ORAL, 10 MG/D ORAL
     Route: 048
     Dates: start: 20100601
  2. MINALGIN (METAMIZOLE SODIUM MONOHYDRATE) [Suspect]
     Indication: PAIN
     Dosage: 500 MG, TID, ORAL
     Route: 048
     Dates: start: 20100728, end: 20100812
  3. ALDACTONE [Concomitant]
  4. MYFORTIC [Concomitant]
  5. DUOFER (ASCORBIC ACID, FERROUS FUMARATE, FERROUS FLUCONATE) [Concomitant]
  6. EZETIMIBE [Concomitant]
  7. NEOTIGASONE (ACITRETIN) [Concomitant]
  8. NEXIUM [Concomitant]
  9. PREDNISONE TAB [Concomitant]
  10. CALCIUM SANDOZ (CALCIUM CARBONATE) [Concomitant]
  11. ASPIRIN CARDO (ACETYLSALICYLIC ACID) [Concomitant]

REACTIONS (5)
  - DIARRHOEA [None]
  - IMMUNOSUPPRESSANT DRUG LEVEL DECREASED [None]
  - IMMUNOSUPPRESSANT DRUG LEVEL INCREASED [None]
  - INHIBITORY DRUG INTERACTION [None]
  - SURGERY [None]
